FAERS Safety Report 9735019 (Version 1)
Quarter: 2013Q4

REPORT INFORMATION
  Report Type: Spontaneous
  Country: US (occurrence: US)
  Receive Date: 20131206
  Receipt Date: 20131206
  Transmission Date: 20140711
  Serious: Yes (Other)
  Sender: FDA-Public Use
  Company Number: US-ELI_LILLY_AND_COMPANY-US201311008457

PATIENT
  Sex: Female

DRUGS (3)
  1. HUMALOG LISPRO [Suspect]
     Indication: DIABETES MELLITUS
     Dosage: UNK
     Route: 065
     Dates: start: 1990
  2. LANTUS [Concomitant]
     Dosage: 12 U, EACH EVENING
     Route: 065
  3. AVASTIN [Concomitant]
     Dosage: UNK
     Route: 065

REACTIONS (7)
  - Blindness [Not Recovered/Not Resolved]
  - Liver disorder [Unknown]
  - Ankylosing spondylitis [Unknown]
  - Enzyme abnormality [Unknown]
  - Blood glucose increased [Unknown]
  - Nasopharyngitis [Unknown]
  - Underdose [Unknown]
